FAERS Safety Report 17660771 (Version 1)
Quarter: 2020Q2

REPORT INFORMATION
  Report Type: Spontaneous
  Country: ES (occurrence: ES)
  Receive Date: 20200413
  Receipt Date: 20200413
  Transmission Date: 20200713
  Serious: Yes (Life-Threatening, Hospitalization)
  Sender: FDA-Public Use
  Company Number: ES-TEVA-2020-ES-1222889

PATIENT
  Age: 50 Year
  Sex: Male

DRUGS (5)
  1. QUETIAPINA (1136A) [Suspect]
     Active Substance: QUETIAPINE
     Dosage: 100 MILLIGRAM
     Route: 048
     Dates: start: 20200214, end: 20200302
  2. CLONIDINA HIDROCLORURO (636CH) [Interacting]
     Active Substance: CLONIDINE HYDROCHLORIDE
     Indication: WITHDRAWAL SYNDROME
     Route: 048
     Dates: start: 20200214, end: 20200304
  3. METADONA HIDROCLORURO (1922CH) [Interacting]
     Active Substance: METHADONE HYDROCHLORIDE
     Indication: WITHDRAWAL SYNDROME
     Dosage: 10 MILLIGRAM
     Route: 048
     Dates: start: 20200207, end: 20200302
  4. HALOPERIDOL (1693A) [Interacting]
     Active Substance: HALOPERIDOL
     Indication: WITHDRAWAL SYNDROME
     Route: 048
     Dates: start: 20200214, end: 20200304
  5. MIRTAZAPINA (2704A) [Interacting]
     Active Substance: MIRTAZAPINE
     Dosage: 30 MILLIGRAM
     Route: 048
     Dates: start: 20200220, end: 20200302

REACTIONS (3)
  - Coma [Recovered/Resolved]
  - Drug interaction [Unknown]
  - Encephalopathy [Recovered/Resolved]

NARRATIVE: CASE EVENT DATE: 20200224
